FAERS Safety Report 9697293 (Version 1)
Quarter: 2013Q4

REPORT INFORMATION
  Report Type: Spontaneous
  Country: US (occurrence: None)
  Receive Date: 20131119
  Receipt Date: 20131119
  Transmission Date: 20140711
  Serious: Yes (Other)
  Sender: FDA-Public Use
  Company Number: None

PATIENT
  Age: 73 Year
  Sex: Female
  Weight: 86.18 kg

DRUGS (24)
  1. BYSTOLIC [Suspect]
     Indication: HYPERTENSION
     Route: 048
     Dates: start: 20130705, end: 20130828
  2. POTASSIUM [Concomitant]
  3. DUNEB NEBUTIZER [Concomitant]
  4. PROAIR HFA [Concomitant]
  5. METFORMAN [Concomitant]
  6. ALENDRONATE [Concomitant]
  7. LISINOPRIL [Concomitant]
  8. FUROSMIDE [Concomitant]
  9. FOLIC ACID [Concomitant]
  10. IBUPROFEN [Concomitant]
  11. RANITDINE (ZANTAC) [Concomitant]
  12. FENOFIBRATE [Concomitant]
  13. ANTENLOL [Concomitant]
  14. OXGYN [Concomitant]
  15. DIBEDIC [Concomitant]
  16. BIOTON 5000 (HAIR) [Concomitant]
  17. FISH OIL [Concomitant]
  18. MULT V [Concomitant]
  19. RED YEAST RICE [Concomitant]
  20. VC YINQIAOPIAN [Concomitant]
  21. ASPRIN 81 [Concomitant]
  22. BIOTON CALCIUM [Concomitant]
  23. MULT V [Concomitant]
  24. MUCINEX [Concomitant]

REACTIONS (1)
  - Alopecia [None]
